FAERS Safety Report 13936788 (Version 2)
Quarter: 2017Q4

REPORT INFORMATION
  Report Type: Report from Study
  Country: AT (occurrence: AT)
  Receive Date: 20170905
  Receipt Date: 20171025
  Transmission Date: 20180320
  Serious: Yes (Hospitalization)
  Sender: FDA-Public Use
  Company Number: AT-BAYER-2017-045897

PATIENT
  Sex: Male

DRUGS (14)
  1. STIVARGA [Suspect]
     Active Substance: REGORAFENIB
     Indication: COLORECTAL CANCER METASTATIC
     Dosage: DAILY DOSE 160 MG
     Dates: start: 20161223, end: 20170308
  2. STIVARGA [Suspect]
     Active Substance: REGORAFENIB
     Indication: COLORECTAL CANCER METASTATIC
     Dosage: DAILY DOSE 160 MG
     Dates: start: 20170323
  3. DULCOLAX (BISACODYL) [Concomitant]
     Active Substance: BISACODYL
     Dosage: DAILY DOSE 2 DF
     Dates: start: 201510
  4. LAEVOLAC [Concomitant]
     Active Substance: LACTULOSE
     Dosage: DAILY DOSE 3 ML
     Dates: start: 201510
  5. HALCION [Concomitant]
     Active Substance: TRIAZOLAM
     Dosage: DAILY DOSE .25 MG
     Dates: start: 201510
  6. SPIRIVA [Concomitant]
     Active Substance: TIOTROPIUM BROMIDE MONOHYDRATE
     Dosage: DAILY DOSE 18 ?G
     Dates: start: 201510
  7. NOVALGIN [Concomitant]
     Active Substance: METAMIZOLE SODIUM
     Dosage: DAILY DOSE 30 DF
     Dates: start: 201510
  8. PANTOLOC [Concomitant]
     Active Substance: PANTOPRAZOLE SODIUM
     Indication: PROPHYLAXIS
     Dosage: DAILY DOSE 40 MG
     Dates: start: 201510
  9. MEXALEN [Concomitant]
     Active Substance: ACETAMINOPHEN
     Dosage: DAILY DOSE 500 MG
     Dates: start: 20170225
  10. AMLODIPIN [Concomitant]
     Active Substance: AMLODIPINE BESYLATE
     Dosage: DAILY DOSE 10 MG
     Dates: start: 201611
  11. SERETIDE [Concomitant]
     Active Substance: FLUTICASONE PROPIONATE\SALMETEROL XINAFOATE
     Dosage: DAILY DOSE 1 DF
     Dates: start: 201510
  12. MARCUMAR [Concomitant]
     Active Substance: PHENPROCOUMON
     Dosage: DAILY DOSE 3 MG
     Dates: start: 201611
  13. METFORMIN [Concomitant]
     Active Substance: METFORMIN HYDROCHLORIDE
     Dosage: DAILY DOSE 500 MG
     Dates: start: 201611
  14. MOTILIUM [Concomitant]
     Active Substance: DOMPERIDONE
     Dosage: DAILY DOSE 10 MG
     Dates: start: 201510

REACTIONS (1)
  - Anal abscess [Recovered/Resolved]

NARRATIVE: CASE EVENT DATE: 20170314
